FAERS Safety Report 21466901 (Version 2)
Quarter: 2022Q4

REPORT INFORMATION
  Report Type: Spontaneous
  Country: FR (occurrence: FR)
  Receive Date: 20221017
  Receipt Date: 20221019
  Transmission Date: 20230112
  Serious: Yes (Other)
  Sender: FDA-Public Use
  Company Number: FR-Santen Oy-2022-FRA-006962

PATIENT
  Age: 59 Year
  Sex: Female

DRUGS (5)
  1. CYCLOSPORINE [Suspect]
     Active Substance: CYCLOSPORINE
     Indication: Herpes ophthalmic
     Dosage: 1 DROP TO BE TAKEN EVERY DAY IN BOTH EYES
     Route: 047
     Dates: start: 202103
  2. CYCLOSPORINE [Suspect]
     Active Substance: CYCLOSPORINE
     Dosage: 1 DROP TO BE TAKEN EVERY OTHER DAY AS IT IS TOO EXPENSIVE
     Route: 047
     Dates: start: 20210920
  3. OptiVision [Concomitant]
     Dosage: UNK
  4. Vis Med [Concomitant]
     Dosage: UNK
     Route: 047
  5. Artelac [Concomitant]
     Dosage: UNK

REACTIONS (7)
  - Visual impairment [Not Recovered/Not Resolved]
  - Off label use [Unknown]
  - Drug effective for unapproved indication [Unknown]
  - Contraindicated product prescribed [Unknown]
  - Intentional product use issue [Unknown]
  - Intentional product misuse [Unknown]
  - Product availability issue [Unknown]

NARRATIVE: CASE EVENT DATE: 20210301
